FAERS Safety Report 16485403 (Version 1)
Quarter: 2019Q2

REPORT INFORMATION
  Report Type: Spontaneous
  Country: US (occurrence: US)
  Receive Date: 20190517
  Receipt Date: 20190517
  Transmission Date: 20190711
  Serious: No
  Sender: FDA-Public Use
  Company Number: None

PATIENT
  Age: 59 Year
  Sex: Female

DRUGS (1)
  1. REBIF [Suspect]
     Active Substance: INTERFERON BETA-1A
     Route: 058

REACTIONS (3)
  - Anxiety [None]
  - Injection site pain [None]
  - White blood cell count decreased [None]

NARRATIVE: CASE EVENT DATE: 20190517
